FAERS Safety Report 14292043 (Version 4)
Quarter: 2018Q4

REPORT INFORMATION
  Report Type: Spontaneous
  Country: US (occurrence: US)
  Receive Date: 20171215
  Receipt Date: 20181204
  Transmission Date: 20190204
  Serious: Yes (Other)
  Sender: FDA-Public Use
  Company Number: US-ASTRAZENECA-2017SF27032

PATIENT
  Age: 23851 Day
  Sex: Female
  Weight: 141 kg

DRUGS (48)
  1. NEXIUM [Suspect]
     Active Substance: ESOMEPRAZOLE MAGNESIUM
     Indication: GASTROOESOPHAGEAL REFLUX DISEASE
     Route: 048
     Dates: start: 20110109, end: 2017
  2. PANTOPRAZOLE [Suspect]
     Active Substance: PANTOPRAZOLE
     Indication: GASTROOESOPHAGEAL REFLUX DISEASE
     Dosage: GENERIC, 150 MG, TWO TIMES A DAY
     Route: 065
  3. CYCLOBENZAPRINE. [Concomitant]
     Active Substance: CYCLOBENZAPRINE
     Indication: PAIN
  4. TRIAMTERENE. [Concomitant]
     Active Substance: TRIAMTERENE
     Indication: BLOOD PRESSURE ABNORMAL
  5. TRILIPIX [Concomitant]
     Active Substance: FENOFIBRIC ACID
  6. VITAMIN E [Concomitant]
     Active Substance: .ALPHA.-TOCOPHEROL
     Indication: VITAMIN E DEFICIENCY
  7. RANITIDINE. [Concomitant]
     Active Substance: RANITIDINE
     Dosage: GENERIC, 150 MG
     Dates: start: 2016
  8. BUSPIRONE [Concomitant]
     Active Substance: BUSPIRONE HYDROCHLORIDE
     Indication: ANXIETY
  9. PROMETHAZINE [Concomitant]
     Active Substance: PROMETHAZINE\PROMETHAZINE HYDROCHLORIDE
     Indication: MULTIPLE ALLERGIES
  10. HYDROCODONE-APAP [Concomitant]
     Active Substance: ACETAMINOPHEN\HYDROCODONE
     Indication: PAIN
  11. MUCINEX [Concomitant]
     Active Substance: GUAIFENESIN
  12. TRADJENTA [Concomitant]
     Active Substance: LINAGLIPTIN
  13. AMLODIPINE [Concomitant]
     Active Substance: AMLODIPINE BESYLATE
  14. ZEGERID [Suspect]
     Active Substance: OMEPRAZOLE\SODIUM BICARBONATE
     Dosage: GENERIC
     Route: 065
  15. ROPINIROLE HYDROCHLORIDE. [Concomitant]
     Active Substance: ROPINIROLE HYDROCHLORIDE
     Indication: RESTLESS LEGS SYNDROME
     Dates: start: 2011, end: 2016
  16. VALIUM [Concomitant]
     Active Substance: DIAZEPAM
  17. HYZAAR [Concomitant]
     Active Substance: HYDROCHLOROTHIAZIDE\LOSARTAN POTASSIUM
  18. LUNESTA [Concomitant]
     Active Substance: ESZOPICLONE
  19. CALCIPOTRIENE. [Concomitant]
     Active Substance: CALCIPOTRIENE
  20. VITAMIN D [Concomitant]
     Active Substance: CHOLECALCIFEROL
     Indication: VITAMIN D DEFICIENCY
  21. FENTANYL CITRATE. [Concomitant]
     Active Substance: FENTANYL CITRATE
  22. CARISOPRODOL. [Concomitant]
     Active Substance: CARISOPRODOL
  23. FLUMAZENIL. [Concomitant]
     Active Substance: FLUMAZENIL
  24. ONDANSETRON [Concomitant]
     Active Substance: ONDANSETRON
  25. SAVELLA [Concomitant]
     Active Substance: MILNACIPRAN HYDROCHLORIDE
     Indication: PAIN
  26. CITALOPRAM HYDROBROMIDE. [Concomitant]
     Active Substance: CITALOPRAM HYDROBROMIDE
     Indication: DEPRESSION
  27. OXYCODONE-ACETAMINOPHEN [Concomitant]
     Active Substance: ACETAMINOPHEN\OXYCODONE HYDROCHLORIDE
     Indication: PAIN
  28. HYDROCHLOROTHIAZIDE. [Concomitant]
     Active Substance: HYDROCHLOROTHIAZIDE
     Indication: RESTLESS LEGS SYNDROME
     Dates: start: 2011, end: 2016
  29. LYRICA [Concomitant]
     Active Substance: PREGABALIN
     Indication: RESTLESS LEGS SYNDROME
     Dates: start: 2011, end: 2016
  30. FOLIC ACID. [Concomitant]
     Active Substance: FOLIC ACID
  31. DIPHENHYDRAMINE. [Concomitant]
     Active Substance: DIPHENHYDRAMINE
     Indication: MULTIPLE ALLERGIES
  32. LIPITOR [Concomitant]
     Active Substance: ATORVASTATIN CALCIUM
     Indication: BLOOD CHOLESTEROL ABNORMAL
  33. LOVAZA [Concomitant]
     Active Substance: OMEGA-3-ACID ETHYL ESTERS
     Indication: DIABETES MELLITUS
  34. AVANDIA [Concomitant]
     Active Substance: ROSIGLITAZONE MALEATE
  35. LANSOPRAZOLE. [Concomitant]
     Active Substance: LANSOPRAZOLE
  36. IBUPROFEN. [Concomitant]
     Active Substance: IBUPROFEN
     Indication: PAIN
     Dosage: 800 MG
     Dates: start: 2010, end: 2012
  37. RESTASIS [Concomitant]
     Active Substance: CYCLOSPORINE
     Dates: start: 2011, end: 2016
  38. LEVAQUIN [Concomitant]
     Active Substance: LEVOFLOXACIN
  39. CEPHALEXIN. [Concomitant]
     Active Substance: CEPHALEXIN
  40. CALCIUM [Concomitant]
     Active Substance: CALCIUM
  41. LASIX [Concomitant]
     Active Substance: FUROSEMIDE
  42. NEXIUM [Suspect]
     Active Substance: ESOMEPRAZOLE MAGNESIUM
     Indication: GASTROOESOPHAGEAL REFLUX DISEASE
     Route: 048
     Dates: start: 20100415
  43. ATENOLOL. [Concomitant]
     Active Substance: ATENOLOL
     Indication: BLOOD PRESSURE ABNORMAL
  44. SYMBICORT [Concomitant]
     Active Substance: BUDESONIDE\FORMOTEROL FUMARATE DIHYDRATE
     Dates: start: 2011, end: 2016
  45. PAXIL [Concomitant]
     Active Substance: PAROXETINE HYDROCHLORIDE
  46. PEPCID [Concomitant]
     Active Substance: FAMOTIDINE
  47. VECURONIUM [Concomitant]
     Active Substance: VECURONIUM BROMIDE
  48. MUPIROCIN. [Concomitant]
     Active Substance: MUPIROCIN

REACTIONS (2)
  - Chronic kidney disease [Not Recovered/Not Resolved]
  - Renal failure [Unknown]

NARRATIVE: CASE EVENT DATE: 20121031
